FAERS Safety Report 5596504-9 (Version None)
Quarter: 2008Q1

REPORT INFORMATION
  Report Type: 
  Country: None (occurrence: None)
  Receive Date: 20080118
  Receipt Date: 20080108
  Transmission Date: 20080703
  Serious: Yes (Death, Other)
  Sender: FDA-Public Use
  Company Number: AU-PFIZER INC-2007107297

PATIENT
  Age: 80 Year
  Sex: Male
  Weight: 95 kg

DRUGS (8)
  1. LIPITOR [Suspect]
     Indication: HYPERCHOLESTEROLAEMIA
     Route: 048
     Dates: start: 20000613, end: 20070213
  2. FELODIPINE [Concomitant]
     Route: 048
  3. COVERSYL [Concomitant]
     Route: 048
  4. OMEPRAZOLE [Concomitant]
     Route: 048
  5. PANAMAX [Concomitant]
     Route: 048
  6. SOLONE [Concomitant]
     Route: 048
  7. NEMDYN [Concomitant]
     Route: 048
  8. ENDONE [Concomitant]
     Route: 048

REACTIONS (2)
  - HAEMORRHAGIC STROKE [None]
  - TRANSIENT ISCHAEMIC ATTACK [None]
